FAERS Safety Report 5427249-3 (Version None)
Quarter: 2007Q3

REPORT INFORMATION
  Report Type: 
  Country: None (occurrence: None)
  Receive Date: 20070828
  Receipt Date: 20070824
  Transmission Date: 20080115
  Serious: Yes (Life-Threatening, Hospitalization, Other)
  Sender: FDA-Public Use
  Company Number: GB-BRISTOL-MYERS SQUIBB COMPANY-13888359

PATIENT
  Age: 39 Year
  Sex: Male

DRUGS (2)
  1. EFAVIRENZ [Suspect]
     Indication: HIV INFECTION
     Route: 048
     Dates: start: 20060701, end: 20070601
  2. KIVEXA [Concomitant]
     Indication: HIV INFECTION
     Route: 048
     Dates: start: 20060701, end: 20070601

REACTIONS (1)
  - ACUTE HEPATIC FAILURE [None]
